FAERS Safety Report 7458177-X (Version None)
Quarter: 2011Q1

REPORT INFORMATION
  Report Type: 
  Country: None (occurrence: None)
  Receive Date: 20110302
  Receipt Date: 20101124
  Transmission Date: 20110831
  Serious: No
  Sender: FDA-Public Use
  Company Number: 163-21880-08010836

PATIENT
  Age: 63 Year
  Sex: Female

DRUGS (3)
  1. REVLIMID [Suspect]
     Indication: MULTIPLE MYELOMA
     Dosage: 25 MG, DAILY X 21 DAYS, PO 10-5MG, DAILY X 21 DAYS, PO 5 MG, DAILY ON DAYS 1 - 21, PO
     Route: 048
     Dates: start: 20071107, end: 20071101
  2. REVLIMID [Suspect]
     Indication: MULTIPLE MYELOMA
     Dosage: 25 MG, DAILY X 21 DAYS, PO 10-5MG, DAILY X 21 DAYS, PO 5 MG, DAILY ON DAYS 1 - 21, PO
     Route: 048
     Dates: start: 20101101
  3. REVLIMID [Suspect]
     Indication: MULTIPLE MYELOMA
     Dosage: 25 MG, DAILY X 21 DAYS, PO 10-5MG, DAILY X 21 DAYS, PO 5 MG, DAILY ON DAYS 1 - 21, PO
     Route: 048
     Dates: start: 20080114, end: 20080101

REACTIONS (6)
  - BURNING SENSATION [None]
  - LYMPHADENOPATHY [None]
  - RASH [None]
  - EAR DISCOMFORT [None]
  - SWELLING [None]
  - PRURITUS [None]
